FAERS Safety Report 24206401 (Version 1)
Quarter: 2024Q3

REPORT INFORMATION
  Report Type: Spontaneous
  Country: NL (occurrence: NL)
  Receive Date: 20240813
  Receipt Date: 20240813
  Transmission Date: 20241017
  Serious: Yes (Life-Threatening, Hospitalization, Other)
  Sender: TEVA
  Company Number: None

PATIENT
  Age: 69 Year
  Sex: Male
  Weight: 106 kg

DRUGS (6)
  1. DOXAZOSIN [Suspect]
     Active Substance: DOXAZOSIN MESYLATE
     Indication: Hypertension
     Dosage: 4 MG 1 DD, DOXAZOSINE / BRAND NAME NOT SPECIFIED
     Route: 065
     Dates: start: 20240626, end: 20240715
  2. SEMAGLUTIDE [Concomitant]
     Active Substance: SEMAGLUTIDE
     Indication: Product used for unknown indication
     Dosage: 0.5 1 PER WEEK INJ,  INJVLST 0,5MG/DO ,BRAND NAME NOT SPECIFIED
     Route: 065
  3. INSULIN GLARGINE [Concomitant]
     Active Substance: INSULIN GLARGINE
     Indication: Product used for unknown indication
     Dosage: INJECTION FLUID, 100 UNITS/ML (UNITS PER MILLILITER), INSULINE GLARGINE 100E/ML INJVLST / ABASAGL...
     Route: 065
  4. HYDROCHLOROTHIAZIDE [Concomitant]
     Active Substance: HYDROCHLOROTHIAZIDE
     Indication: Product used for unknown indication
     Dosage: TABLET, 12,5 MG (MILLIGRAM), BRAND NAME NOT SPECIFIED
     Route: 065
  5. SPIRONOLACTONE [Concomitant]
     Active Substance: SPIRONOLACTONE
     Indication: Product used for unknown indication
     Dosage: TABLET, 12,5 MG (MILLIGRAM),  BRAND NAME NOT SPECIFIED
     Route: 065
  6. DILTIAZEM [Concomitant]
     Active Substance: DILTIAZEM
     Indication: Product used for unknown indication
     Dosage: MODIFIED-RELEASE TABLET, 90 MG (MILLIGRAM),  BRAND NAME NOT SPECIFIED
     Route: 065

REACTIONS (8)
  - Visual impairment [Recovered/Resolved]
  - Abdominal pain [Recovered/Resolved]
  - Headache [Recovered/Resolved]
  - Diarrhoea [Recovered/Resolved]
  - Somnolence [Recovered/Resolved]
  - Road traffic accident [Recovered/Resolved]
  - Diplopia [Recovered/Resolved]
  - Syncope [Recovered/Resolved]
